FAERS Safety Report 23617938 (Version 1)
Quarter: 2024Q1

REPORT INFORMATION
  Report Type: Spontaneous
  Country: US (occurrence: US)
  Receive Date: 20240311
  Receipt Date: 20240311
  Transmission Date: 20240409
  Serious: Yes (Other)
  Sender: FDA-Public Use
  Company Number: US-SA-SAC20240307000144

PATIENT
  Age: 69 Year
  Sex: Female

DRUGS (7)
  1. AUBAGIO [Suspect]
     Active Substance: TERIFLUNOMIDE
     Indication: Multiple sclerosis
     Route: 065
  2. LOSARTAN [Concomitant]
     Active Substance: LOSARTAN
  3. SOLIFENACIN [Concomitant]
     Active Substance: SOLIFENACIN
  4. VITAMIN D3 [Concomitant]
     Active Substance: CHOLECALCIFEROL
  5. CYANOCOBALAMIN [Concomitant]
     Active Substance: CYANOCOBALAMIN
  6. CALTRATE [Concomitant]
     Active Substance: CALCIUM CARBONATE
  7. PANTOPRAZOLE [Concomitant]
     Active Substance: PANTOPRAZOLE

REACTIONS (4)
  - Multiple sclerosis [Unknown]
  - Gait disturbance [Unknown]
  - Condition aggravated [Unknown]
  - Central nervous system lesion [Unknown]
